FAERS Safety Report 10913277 (Version 1)
Quarter: 2015Q1

REPORT INFORMATION
  Report Type: Spontaneous
  Country: FR (occurrence: None)
  Receive Date: 20150310
  Receipt Date: 20150310
  Transmission Date: 20150721
  Serious: Yes (Hospitalization, Other)
  Sender: FDA-Public Use
  Company Number: FR-H14001-15-00317

PATIENT
  Age: 54 Year
  Sex: Female
  Weight: 68 kg

DRUGS (11)
  1. GENTAMICIN. [Concomitant]
     Active Substance: GENTAMICIN
  2. FLAGYL (METRONIDAZOLE) [Concomitant]
  3. MORPHINE [Concomitant]
     Active Substance: MORPHINE
  4. ARACYTINE (CYTARABINE) (UNKNOWN) (CYTARABINE)? [Suspect]
     Active Substance: CYTARABINE
     Indication: ACUTE MYELOID LEUKAEMIA
     Route: 041
     Dates: start: 20090611, end: 20090614
  5. TAZOCILLINE (PIP/TAZO) (UNKNOWN) (PIPERACILLIN SODIUM, TAZOBACTAM SODIUM) [Concomitant]
  6. ATARAX [Concomitant]
     Active Substance: HYDROXYZINE\HYDROXYZINE HYDROCHLORIDE
  7. MYLOTARG [Suspect]
     Active Substance: GEMTUZUMAB OZOGAMICIN
     Indication: ACUTE MYELOID LEUKAEMIA
     Dosage: 3 MG/M2, 5.20 MG PER 24 HOURS
     Route: 041
     Dates: start: 20090611, end: 20090611
  8. CANCIDAS (CASPOFUNGIN ACETATE) [Concomitant]
  9. XANAX [Concomitant]
     Active Substance: ALPRAZOLAM
  10. CERUBIDIN [Suspect]
     Active Substance: DAUNORUBICIN
     Indication: ACUTE MYELOID LEUKAEMIA
     Dosage: 1 IN 1 D
     Route: 042
     Dates: start: 20090611, end: 20090611
  11. VANCOMYCIN [Concomitant]
     Active Substance: VANCOMYCIN

REACTIONS (11)
  - Bone marrow failure [None]
  - Oral disorder [None]
  - Oral herpes [None]
  - Pericardial effusion [None]
  - Hyperthermia [None]
  - Lymphadenopathy mediastinal [None]
  - Diarrhoea [None]
  - Abscess fungal [None]
  - Thrombocytopenia [None]
  - Bronchopulmonary aspergillosis [None]
  - Pleural effusion [None]

NARRATIVE: CASE EVENT DATE: 200906
